FAERS Safety Report 5409254-6 (Version None)
Quarter: 2007Q3

REPORT INFORMATION
  Report Type: 
  Country: None (occurrence: None)
  Receive Date: 20070809
  Receipt Date: 20070807
  Transmission Date: 20080115
  Serious: Yes (Life-Threatening)
  Sender: FDA-Public Use
  Company Number: PHEH2007US10805

PATIENT
  Sex: Female

DRUGS (2)
  1. AMOXICILLIN [Concomitant]
  2. TRILEPTAL [Suspect]

REACTIONS (5)
  - ABDOMINAL DISTENSION [None]
  - ABDOMINAL PAIN [None]
  - INTUBATION [None]
  - PYREXIA [None]
  - RASH [None]
